FAERS Safety Report 17151454 (Version 1)
Quarter: 2019Q4

REPORT INFORMATION
  Report Type: Spontaneous
  Country: US (occurrence: US)
  Receive Date: 20191212
  Receipt Date: 20191212
  Transmission Date: 20200122
  Serious: No
  Sender: FDA-Public Use
  Company Number: None

PATIENT
  Age: 49 Year
  Sex: Female
  Weight: 73.17 kg

DRUGS (20)
  1. CHANTIX [Concomitant]
     Active Substance: VARENICLINE TARTRATE
  2. ERGOCALCIFEROL 1.25MG [Concomitant]
     Active Substance: ERGOCALCIFEROL
  3. LAMOTRIGINE 200MG [Concomitant]
     Active Substance: LAMOTRIGINE
  4. RIZATRIPTAN 10MG [Concomitant]
     Active Substance: RIZATRIPTAN
  5. ROPINIROLE 1MG [Concomitant]
  6. ASPIRIN 81MG [Concomitant]
     Active Substance: ASPIRIN
  7. FLUOXETINE 40MG [Concomitant]
     Active Substance: FLUOXETINE HYDROCHLORIDE
  8. MONTELUKAST [Concomitant]
     Active Substance: MONTELUKAST SODIUM
  9. AMITRIPTYLINE 25MG [Concomitant]
     Active Substance: AMITRIPTYLINE
  10. DULOXETINE 60MG [Concomitant]
     Active Substance: DULOXETINE
  11. RANITIDINE. [Concomitant]
     Active Substance: RANITIDINE
  12. ATENOLOL 25MG [Concomitant]
     Active Substance: ATENOLOL
  13. MAVYRET [Suspect]
     Active Substance: GLECAPREVIR\PIBRENTASVIR
     Indication: HEPATITIS C
     Route: 048
     Dates: start: 20191207, end: 20191212
  14. LORATADINE-D 10-240MG [Concomitant]
  15. HYDROCODONE-APAP 5/325MG [Concomitant]
  16. BUSPAR 15MG [Concomitant]
  17. HYDROCHLOROTHIAZIDE 25MG [Concomitant]
     Active Substance: HYDROCHLOROTHIAZIDE
  18. LISINOPRIL 10MG [Concomitant]
     Active Substance: LISINOPRIL
  19. POTASSIUM ER 10MG [Concomitant]
  20. QUETIAPINE 100MG [Concomitant]
     Active Substance: QUETIAPINE

REACTIONS (4)
  - Blood bilirubin increased [None]
  - Blood alkaline phosphatase increased [None]
  - Pruritus [None]
  - Therapy cessation [None]

NARRATIVE: CASE EVENT DATE: 20191212
